FAERS Safety Report 8847192 (Version 1)
Quarter: 2012Q4

REPORT INFORMATION
  Report Type: 
  Country: GB (occurrence: GB)
  Receive Date: 20121018
  Receipt Date: 20121018
  Transmission Date: 20130627
  Serious: Yes (Other)
  Sender: FDA-Public Use
  Company Number: GB-ACCORD-014956

PATIENT
  Age: 57 Year
  Sex: Female
  Weight: 50.8 kg

DRUGS (5)
  1. ZOPICLONE [Concomitant]
  2. LAMOTRIGINE [Suspect]
     Indication: MOOD VARIABLE
     Route: 048
     Dates: end: 20120617
  3. LEVOTHYROXINE [Concomitant]
  4. TOPIRAMATE [Suspect]
     Indication: MOOD VARIABLE
     Route: 048
     Dates: end: 20120817
  5. DULOXETINE [Concomitant]

REACTIONS (6)
  - Mouth ulceration [Not Recovered/Not Resolved]
  - Medication error [Unknown]
  - Skin exfoliation [Not Recovered/Not Resolved]
  - Anisocytosis [Recovered/Resolved]
  - Off label use [Unknown]
  - Mouth ulceration [None]
